FAERS Safety Report 19083886 (Version 1)
Quarter: 2021Q2

REPORT INFORMATION
  Report Type: Spontaneous
  Country: CN (occurrence: CN)
  Receive Date: 20210401
  Receipt Date: 20210401
  Transmission Date: 20210717
  Serious: Yes (Other)
  Sender: FDA-Public Use
  Company Number: CN-009507513-2103CHN007149

PATIENT
  Age: 52 Year
  Sex: Male
  Weight: 75 kg

DRUGS (5)
  1. IMIPENEM AND CILASTATIN [Concomitant]
     Active Substance: CILASTATIN SODIUM\IMIPENEM
     Indication: ESCHERICHIA INFECTION
     Dosage: 0.5G Q8H
     Route: 041
     Dates: start: 20191105, end: 20191112
  2. NIMESULIDE [Suspect]
     Active Substance: NIMESULIDE
     Indication: PYREXIA
     Dosage: 50 MILLIGRAM
     Route: 048
     Dates: start: 20191114, end: 2019
  3. TIENAM [Suspect]
     Active Substance: CILASTATIN SODIUM\IMIPENEM
     Dosage: 0.5 GRAM
     Route: 041
     Dates: start: 20191115, end: 2019
  4. PIPERACILLIN AND TAZOBACTAM [Concomitant]
     Active Substance: PIPERACILLIN SODIUM\TAZOBACTAM SODIUM
     Indication: ANTI-INFECTIVE THERAPY
     Dosage: 4.5 GRAM, Q8H
     Route: 041
     Dates: start: 20191029, end: 20191105
  5. IMIPENEM AND CILASTATIN [Concomitant]
     Active Substance: CILASTATIN SODIUM\IMIPENEM
     Indication: PATHOGEN RESISTANCE

REACTIONS (1)
  - Deafness neurosensory [Recovering/Resolving]

NARRATIVE: CASE EVENT DATE: 20191115
